FAERS Safety Report 10447207 (Version 1)
Quarter: 2014Q3

REPORT INFORMATION
  Report Type: Spontaneous
  Country: KR (occurrence: KR)
  Receive Date: 20140911
  Receipt Date: 20140911
  Transmission Date: 20150326
  Serious: Yes (Other)
  Sender: FDA-Public Use
  Company Number: KR-BAYER-2014-132520

PATIENT
  Sex: Male

DRUGS (1)
  1. NEXAVAR [Suspect]
     Active Substance: SORAFENIB
     Dosage: 2 DF, BID
     Route: 048

REACTIONS (4)
  - Alopecia [Recovering/Resolving]
  - Neoplasm progression [None]
  - Tumour marker increased [None]
  - Adverse drug reaction [Recovering/Resolving]
